FAERS Safety Report 5196937-9 (Version None)
Quarter: 2006Q4

REPORT INFORMATION
  Report Type: 
  Country: None (occurrence: None)
  Receive Date: 20061227
  Receipt Date: 20061211
  Transmission Date: 20070319
  Serious: Yes (Hospitalization, Other)
  Sender: FDA-Public Use
  Company Number: 2006147177

PATIENT
  Age: 42 Year
  Sex: Male

DRUGS (2)
  1. HALCION [Suspect]
     Dosage: ORAL
     Route: 048
  2. ALCOHOL (ETHANOL) [Suspect]
     Dosage: ORAL
     Route: 048

REACTIONS (4)
  - ALCOHOL INTERACTION [None]
  - AMNESIA [None]
  - FALL [None]
  - FOOT FRACTURE [None]
